FAERS Safety Report 7658520-2 (Version None)
Quarter: 2011Q3

REPORT INFORMATION
  Report Type: 
  Country: None (occurrence: None)
  Receive Date: 20110805
  Receipt Date: 20110721
  Transmission Date: 20111222
  Serious: Yes (Other)
  Sender: FDA-Public Use
  Company Number: US-ELI_LILLY_AND_COMPANY-US201106007415

PATIENT
  Sex: Female

DRUGS (3)
  1. CELEBREX [Concomitant]
  2. FORTEO [Suspect]
     Dosage: 20 UG, UNK
     Route: 058
  3. FORTEO [Suspect]
     Indication: OSTEOPOROSIS
     Dosage: 20 UG, QD
     Route: 058
     Dates: start: 20110620

REACTIONS (4)
  - LIMB DISCOMFORT [None]
  - ARTHRITIS [None]
  - PAIN [None]
  - SURGERY [None]
